FAERS Safety Report 25543741 (Version 2)
Quarter: 2025Q3

REPORT INFORMATION
  Report Type: Spontaneous
  Country: CN (occurrence: CN)
  Receive Date: 20250711
  Receipt Date: 20250810
  Transmission Date: 20251020
  Serious: Yes (Hospitalization)
  Sender: ALEXION PHARMACEUTICALS
  Company Number: CN-ASTRAZENECA-202507CHN003210CN

PATIENT
  Age: 73 Year
  Sex: Female
  Weight: 54 kg

DRUGS (3)
  1. FASLODEX [Suspect]
     Active Substance: FULVESTRANT
     Indication: Chemotherapy
     Dosage: 0.5 MILLIGRAM, QD
     Dates: start: 20250522, end: 20250522
  2. FASLODEX [Suspect]
     Active Substance: FULVESTRANT
  3. DALPICICLIB [Concomitant]
     Active Substance: DALPICICLIB
     Dosage: 100 MILLIGRAM, QD

REACTIONS (1)
  - Myelosuppression [Recovering/Resolving]

NARRATIVE: CASE EVENT DATE: 20250624
